FAERS Safety Report 16011331 (Version 2)
Quarter: 2019Q1

REPORT INFORMATION
  Report Type: Spontaneous
  Country: US (occurrence: US)
  Receive Date: 20190225
  Receipt Date: 20190225
  Transmission Date: 20190418
  Serious: Yes (Life-Threatening, Hospitalization)
  Sender: FDA-Public Use
  Company Number: US-JNJFOC-20190218839

PATIENT
  Sex: Male

DRUGS (2)
  1. SUDAFED PE CONGESTION [Suspect]
     Active Substance: PHENYLEPHRINE HYDROCHLORIDE
     Indication: SINUS CONGESTION
     Dosage: THE PATIENT DOES NOT REMEMBER HOW MUCH HE TOOK BUT BE BELIEVES HE TOOK IT ONCE A DAY
     Route: 048
     Dates: start: 2017
  2. SUDAFED PE CONGESTION [Suspect]
     Active Substance: PHENYLEPHRINE HYDROCHLORIDE
     Indication: COUGH
     Dosage: THE PATIENT DOES NOT REMEMBER HOW MUCH HE TOOK BUT BE BELIEVES HE TOOK IT ONCE A DAY
     Route: 048
     Dates: start: 2017

REACTIONS (1)
  - Atrial fibrillation [Recovered/Resolved]

NARRATIVE: CASE EVENT DATE: 2017
